FAERS Safety Report 25299225 (Version 4)
Quarter: 2025Q3

REPORT INFORMATION
  Report Type: Spontaneous
  Country: EU (occurrence: EU)
  Receive Date: 20250512
  Receipt Date: 20250702
  Transmission Date: 20251020
  Serious: Yes (Other)
  Sender: CSL BEHRING
  Company Number: EU-BEH-2025204453

PATIENT
  Age: 20 Year
  Sex: Female

DRUGS (3)
  1. PRIVIGEN [Suspect]
     Active Substance: HUMAN IMMUNOGLOBULIN G
     Indication: Still^s disease
     Route: 065
  2. PRIVIGEN [Suspect]
     Active Substance: HUMAN IMMUNOGLOBULIN G
     Route: 065
  3. PRIVIGEN [Suspect]
     Active Substance: HUMAN IMMUNOGLOBULIN G
     Dosage: UNK, QD (DURING 1 DAY)
     Route: 065

REACTIONS (4)
  - Parvovirus B19 infection [Unknown]
  - Suspected transmission of an infectious agent via product [Unknown]
  - Parvovirus B19 test positive [Unknown]
  - Off label use [Unknown]
